FAERS Safety Report 8777430 (Version 1)
Quarter: 2012Q4

REPORT INFORMATION
  Report Type: 
  Country: NL (occurrence: NL)
  Receive Date: 20120911
  Receipt Date: 20120911
  Transmission Date: 20130627
  Serious: Yes (Other)
  Sender: FDA-Public Use
  Company Number: NL-CELGENEUS-114-21880-12031707

PATIENT

DRUGS (3)
  1. REVLIMID [Suspect]
     Indication: MDS
     Dosage: 10 Milligram
     Route: 048
     Dates: start: 2007
  2. REVLIMID [Suspect]
     Route: 048
  3. REVLIMID [Suspect]
     Dosage: 5mg or 10mg
     Route: 048

REACTIONS (17)
  - Vasculitis [Unknown]
  - Cerebrovascular accident [Unknown]
  - Neutropenia [Unknown]
  - Thrombocytopenia [Unknown]
  - Adverse event [Unknown]
  - Myelodysplastic syndrome [Unknown]
  - Leukopenia [Unknown]
  - Therapeutic response decreased [Unknown]
  - No therapeutic response [Unknown]
  - Rash [Unknown]
  - Diarrhoea [Unknown]
  - Nausea [Unknown]
  - Muscle spasms [Unknown]
  - Arthralgia [Unknown]
  - Abdominal pain [Unknown]
  - Fatigue [Unknown]
  - Disease progression [Unknown]
